FAERS Safety Report 7985988-4 (Version None)
Quarter: 2011Q4

REPORT INFORMATION
  Report Type: 
  Country: None (occurrence: None)
  Receive Date: 20111216
  Receipt Date: 20111213
  Transmission Date: 20120403
  Serious: Yes (Hospitalization, Disabling)
  Sender: FDA-Public Use
  Company Number: US-MERCK-1108USA01804

PATIENT
  Age: 72 Year
  Sex: Female

DRUGS (3)
  1. BONIVA [Suspect]
     Indication: OSTEOPOROSIS
     Route: 048
     Dates: start: 20060807, end: 20090728
  2. ACTONEL [Suspect]
     Indication: OSTEOPOROSIS PROPHYLAXIS
     Route: 048
     Dates: start: 20060501, end: 20060701
  3. FOSAMAX [Suspect]
     Indication: OSTEOPOROSIS PROPHYLAXIS
     Route: 048
     Dates: start: 19970428, end: 19971222

REACTIONS (15)
  - OSTEONECROSIS OF JAW [None]
  - LUNG NEOPLASM MALIGNANT [None]
  - ABSCESS ORAL [None]
  - ORAL INFECTION [None]
  - OSTEOPOROSIS [None]
  - BREAST CANCER [None]
  - IMPAIRED HEALING [None]
  - DENTAL CARIES [None]
  - ARTHROPATHY [None]
  - OSTEOMYELITIS [None]
  - THROMBOSIS [None]
  - GALLBLADDER DISORDER [None]
  - GINGIVAL DISORDER [None]
  - OVERDOSE [None]
  - TOOTH DISORDER [None]
